FAERS Safety Report 12939675 (Version 1)
Quarter: 2016Q4

REPORT INFORMATION
  Report Type: Spontaneous
  Country: US (occurrence: US)
  Receive Date: 20161115
  Receipt Date: 20161115
  Transmission Date: 20170207
  Serious: No
  Sender: FDA-Public Use
  Company Number: None

PATIENT

DRUGS (1)
  1. LORATADINE. [Suspect]
     Active Substance: LORATADINE

REACTIONS (4)
  - Dyspnoea [None]
  - Chest discomfort [None]
  - Heart rate increased [None]
  - Atrial fibrillation [None]

NARRATIVE: CASE EVENT DATE: 2016
